FAERS Safety Report 4919856-9 (Version None)
Quarter: 2006Q1

REPORT INFORMATION
  Report Type: 
  Country: None (occurrence: None)
  Receive Date: 20060217
  Receipt Date: 20060208
  Transmission Date: 20060701
  Serious: Yes (Other)
  Sender: FDA-Public Use
  Company Number: 2006019881

PATIENT
  Sex: Male
  Weight: 82.5547 kg

DRUGS (3)
  1. LIPITOR [Suspect]
     Indication: BLOOD CHOLESTEROL INCREASED
     Dosage: 20 MG (20 MG, 1 IN 1 D), ORAL
     Route: 048
     Dates: start: 19980101
  2. ZYRTEC [Suspect]
     Indication: RASH
     Dates: start: 20040101
  3. LISINOPRIL [Concomitant]

REACTIONS (5)
  - ARTHRALGIA [None]
  - INFLUENZA [None]
  - MYALGIA [None]
  - MYOCARDIAL INFARCTION [None]
  - RASH [None]
